FAERS Safety Report 9509387 (Version 2)
Quarter: 2013Q3

REPORT INFORMATION
  Report Type: Spontaneous
  Country: JP (occurrence: JP)
  Receive Date: 20130909
  Receipt Date: 20130909
  Transmission Date: 20140515
  Serious: Yes (Death, Hospitalization, Other)
  Sender: FDA-Public Use
  Company Number: JP-BAYER-200915311BYL

PATIENT
  Age: 32 Year
  Sex: Male
  Weight: 57 kg

DRUGS (3)
  1. NEXAVAR [Suspect]
     Indication: HEPATOCELLULAR CARCINOMA
     Dosage: 800 MG (DAILY DOSE), , ORAL
     Route: 048
     Dates: start: 20091202
  2. NEXAVAR [Suspect]
     Indication: HEPATOCELLULAR CARCINOMA
     Dosage: 200 MG (DAILY DOSE), , ORAL
     Route: 048
     Dates: start: 20091229, end: 20100108
  3. BARACLUDE [Concomitant]
     Indication: HEPATITIS B
     Dosage: 0.5 MG (DAILY DOSE), , ORAL
     Route: 048
     Dates: start: 20091013, end: 20100108

REACTIONS (4)
  - Diarrhoea [Recovering/Resolving]
  - Hepatocellular carcinoma [Fatal]
  - Oesophageal varices haemorrhage [Fatal]
  - Hepatic encephalopathy [None]
